FAERS Safety Report 7132166-7 (Version None)
Quarter: 2010Q4

REPORT INFORMATION
  Report Type: 
  Country: None (occurrence: None)
  Receive Date: 20101124
  Receipt Date: 20101124
  Transmission Date: 20110411
  Serious: Yes (Other)
  Sender: FDA-Public Use
  Company Number: None

PATIENT
  Age: 68 Year
  Sex: Female
  Weight: 48.5349 kg

DRUGS (6)
  1. KLOR-CON M10 [Suspect]
     Indication: HYPOKALAEMIA
     Dosage: ONE TAB DAILY 047 ORAL
     Route: 048
     Dates: start: 20091117, end: 20100514
  2. KLOR-CON M20 [Suspect]
     Indication: HYPOKALAEMIA
     Dosage: ONE TAB DAILY 047 ORAL
     Route: 048
     Dates: start: 20091110, end: 20091117
  3. ENALAPRIL MALEATE [Concomitant]
  4. HYDROCHLOROTHIAZIDE [Concomitant]
  5. AROMASIN [Concomitant]
  6. VITAMIN D [Concomitant]

REACTIONS (6)
  - DISCOMFORT [None]
  - DYSSTASIA [None]
  - GAIT DISTURBANCE [None]
  - INSOMNIA [None]
  - PAIN [None]
  - RASH [None]
